FAERS Safety Report 6667771-5 (Version None)
Quarter: 2010Q2

REPORT INFORMATION
  Report Type: 
  Country: None (occurrence: None)
  Receive Date: 20100405
  Receipt Date: 20100331
  Transmission Date: 20101027
  Serious: Yes (Death, Hospitalization)
  Sender: FDA-Public Use
  Company Number: JP-JNJFOC-20100204692

PATIENT
  Sex: Male

DRUGS (7)
  1. DUROTEP MT [Suspect]
     Indication: CANCER PAIN
     Route: 062
  2. MAGMITT [Concomitant]
     Route: 048
  3. PROTECADIN [Concomitant]
     Route: 048
  4. PRAVASTAN [Concomitant]
     Route: 048
  5. MAGMITT [Concomitant]
     Route: 048
  6. OPSO [Concomitant]
     Route: 048
  7. GOODMIN [Concomitant]
     Route: 048

REACTIONS (4)
  - ADVERSE EVENT [None]
  - BACK PAIN [None]
  - BILE DUCT CANCER [None]
  - NAUSEA [None]
